FAERS Safety Report 23486739 (Version 1)
Quarter: 2024Q1

REPORT INFORMATION
  Report Type: Spontaneous
  Country: US (occurrence: None)
  Receive Date: 20240205
  Receipt Date: 20240205
  Transmission Date: 20240410
  Serious: No
  Sender: FDA-Public Use
  Company Number: None

PATIENT
  Age: 84 Year
  Sex: Male

DRUGS (1)
  1. PIRFENIDONE [Suspect]
     Active Substance: PIRFENIDONE
     Indication: Interstitial lung disease
     Dosage: 267MG TID ORAL
     Route: 048
     Dates: start: 20230824

REACTIONS (7)
  - Chest pain [None]
  - Dyspnoea [None]
  - Pleurisy [None]
  - Cough [None]
  - Fibrin D dimer increased [None]
  - Interstitial lung disease [None]
  - Condition aggravated [None]

NARRATIVE: CASE EVENT DATE: 20240204
